FAERS Safety Report 13264542 (Version 1)
Quarter: 2017Q1

REPORT INFORMATION
  Report Type: Spontaneous
  Country: US (occurrence: US)
  Receive Date: 20170223
  Receipt Date: 20170223
  Transmission Date: 20170428
  Serious: Yes (Death, Hospitalization)
  Sender: FDA-Public Use
  Company Number: None

PATIENT
  Age: 74 Year
  Sex: Male
  Weight: 64.7 kg

DRUGS (3)
  1. CYTARABINE. [Suspect]
     Active Substance: CYTARABINE
     Dates: end: 20170203
  2. PRAVASTATIN SODIUM. [Suspect]
     Active Substance: PRAVASTATIN SODIUM
     Dates: end: 20170203
  3. IDARUBICIN [Suspect]
     Active Substance: IDARUBICIN
     Dates: end: 20170202

REACTIONS (8)
  - Small intestinal obstruction [None]
  - Atrial fibrillation [None]
  - Abdominal pain [None]
  - Infection [None]
  - Abdominal distension [None]
  - Diarrhoea [None]
  - Bacterial test positive [None]
  - Hypotension [None]

NARRATIVE: CASE EVENT DATE: 20170210
